FAERS Safety Report 9204287 (Version 1)
Quarter: 2013Q2

REPORT INFORMATION
  Report Type: Spontaneous
  Country: US (occurrence: None)
  Receive Date: 20130401
  Receipt Date: 20130401
  Transmission Date: 20140414
  Serious: No
  Sender: FDA-Public Use
  Company Number: None

PATIENT
  Age: 40 Year
  Sex: Female
  Weight: 54.5 kg

DRUGS (1)
  1. MIRENA IUD [Suspect]

REACTIONS (10)
  - Medical device complication [None]
  - Back pain [None]
  - Headache [None]
  - Pain [None]
  - Influenza like illness [None]
  - Loss of consciousness [None]
  - Local swelling [None]
  - Toxic shock syndrome [None]
  - Cellulitis [None]
  - Haemorrhage [None]
